FAERS Safety Report 12394877 (Version 5)
Quarter: 2016Q3

REPORT INFORMATION
  Report Type: Spontaneous
  Country: US (occurrence: US)
  Receive Date: 20160523
  Receipt Date: 20160809
  Transmission Date: 20161109
  Serious: Yes (Death, Hospitalization, Other)
  Sender: FDA-Public Use
  Company Number: US-CELGENEUS-USA-2016052432

PATIENT
  Age: 79 Year
  Sex: Male

DRUGS (1)
  1. REVLIMID [Suspect]
     Active Substance: LENALIDOMIDE
     Indication: PLASMA CELL MYELOMA
     Dosage: 5 MILLIGRAM
     Route: 048
     Dates: start: 20160425, end: 2016

REACTIONS (5)
  - Rash generalised [Not Recovered/Not Resolved]
  - Dyspnoea [Unknown]
  - General physical health deterioration [Unknown]
  - Plasma cell myeloma [Fatal]
  - Renal failure [Unknown]

NARRATIVE: CASE EVENT DATE: 2016
